FAERS Safety Report 21121922 (Version 1)
Quarter: 2022Q3

REPORT INFORMATION
  Report Type: Spontaneous
  Country: CN (occurrence: CN)
  Receive Date: 20220722
  Receipt Date: 20220722
  Transmission Date: 20221027
  Serious: Yes (Hospitalization, Other)
  Sender: FDA-Public Use
  Company Number: CN-009507513-2207CHN005293

PATIENT
  Age: 82 Year
  Sex: Male

DRUGS (2)
  1. CILASTATIN SODIUM\IMIPENEM [Suspect]
     Active Substance: CILASTATIN SODIUM\IMIPENEM
     Indication: Pneumonia
     Dosage: DOSE: 1G, FREQUENCY: 3 TIMES A DAY
     Route: 041
     Dates: start: 20220701, end: 20220703
  2. CILASTATIN SODIUM\IMIPENEM [Suspect]
     Active Substance: CILASTATIN SODIUM\IMIPENEM
     Dosage: DOSE: 1G, FREQUENCY: 3 TIMES A DAY
     Route: 041
     Dates: start: 20220701, end: 20220703

REACTIONS (3)
  - Seizure [Recovering/Resolving]
  - Uraemic encephalopathy [Recovering/Resolving]
  - Depressed level of consciousness [Recovering/Resolving]

NARRATIVE: CASE EVENT DATE: 20220703
